FAERS Safety Report 11468278 (Version 1)
Quarter: 2015Q3

REPORT INFORMATION
  Report Type: Spontaneous
  Country: US (occurrence: US)
  Receive Date: 20150908
  Receipt Date: 20150908
  Transmission Date: 20151125
  Serious: No
  Sender: FDA-Public Use
  Company Number: US-BAYER-2015-416520

PATIENT
  Sex: Female

DRUGS (1)
  1. EOVIST [Suspect]
     Active Substance: GADOXETATE DISODIUM
     Indication: ABDOMEN SCAN
     Dosage: UNK, ONCE
     Route: 042
     Dates: start: 20150902, end: 20150902

REACTIONS (4)
  - Injection site extravasation [None]
  - Pain in extremity [None]
  - Injection site pain [None]
  - Injection site swelling [None]

NARRATIVE: CASE EVENT DATE: 20150902
